FAERS Safety Report 21098528 (Version 1)
Quarter: 2022Q3

REPORT INFORMATION
  Report Type: Spontaneous
  Country: US (occurrence: US)
  Receive Date: 20220719
  Receipt Date: 20220719
  Transmission Date: 20221027
  Serious: Yes (Other)
  Sender: FDA-Public Use
  Company Number: US-UROGEN PHARMA LTD.-2022-UGN-000065

PATIENT

DRUGS (5)
  1. JELMYTO [Suspect]
     Active Substance: MITOMYCIN
     Indication: Transitional cell cancer of the renal pelvis and ureter
     Dosage: UNK, ONE TIME PER WEEK (INSTILLATION)
     Dates: start: 2022, end: 2022
  2. JELMYTO [Suspect]
     Active Substance: MITOMYCIN
     Dosage: UNK, ONE TIME PER WEEK (INSTILLATION)
     Dates: start: 2022, end: 2022
  3. JELMYTO [Suspect]
     Active Substance: MITOMYCIN
     Dosage: UNK, ONE TIME PER WEEK (INSTILLATION)
     Dates: start: 2022, end: 2022
  4. JELMYTO [Suspect]
     Active Substance: MITOMYCIN
     Dosage: UNK, ONE TIME PER WEEK (INSTILLATION)
     Dates: start: 2022, end: 2022
  5. JELMYTO [Suspect]
     Active Substance: MITOMYCIN
     Dosage: UNK, ONE TIME PER WEEK (INSTILLATION)
     Dates: start: 20220603, end: 20220603

REACTIONS (1)
  - Neutropenia [Not Recovered/Not Resolved]

NARRATIVE: CASE EVENT DATE: 20220608
